FAERS Safety Report 5832080-0 (Version None)
Quarter: 2008Q3

REPORT INFORMATION
  Report Type: 
  Country: None (occurrence: None)
  Receive Date: 20080804
  Receipt Date: 20080724
  Transmission Date: 20090109
  Serious: Yes (Hospitalization)
  Sender: FDA-Public Use
  Company Number: US-ROCHE-577523

PATIENT
  Age: 35 Year
  Sex: Female

DRUGS (1)
  1. BONIVA [Suspect]
     Indication: OSTEOPOROSIS
     Route: 048

REACTIONS (3)
  - GASTRITIS [None]
  - GASTROINTESTINAL HYPOMOTILITY [None]
  - PEPTIC ULCER [None]
